FAERS Safety Report 15753109 (Version 1)
Quarter: 2018Q4

REPORT INFORMATION
  Report Type: Report from Study
  Country: JP (occurrence: JP)
  Receive Date: 20181221
  Receipt Date: 20181221
  Transmission Date: 20190205
  Serious: Yes (Other)
  Sender: FDA-Public Use
  Company Number: JP-AMGEN-JPNCT2018182144

PATIENT
  Age: 79 Year
  Sex: Male

DRUGS (6)
  1. PRIMOBOLAN-DEPOT [Suspect]
     Active Substance: METHENOLONE ENANTHATE
     Indication: MYELODYSPLASTIC SYNDROME
     Dosage: 10 MG, UNK
     Route: 048
     Dates: start: 20171128
  2. DARBEPOETIN ALFA [Suspect]
     Active Substance: DARBEPOETIN ALFA
     Indication: MYELODYSPLASTIC SYNDROME
     Dosage: 240 MUG, Q4WK
     Route: 058
     Dates: start: 20170829, end: 20171024
  3. ALFAROL [Concomitant]
     Active Substance: ALFACALCIDOL
     Indication: MYELODYSPLASTIC SYNDROME
     Dosage: 1 MUG, UNK
     Route: 048
     Dates: start: 20171226
  4. DARBEPOETIN ALFA [Suspect]
     Active Substance: DARBEPOETIN ALFA
     Dosage: 240 MUG, QWK
     Route: 058
     Dates: start: 20171031, end: 20171107
  5. DARBEPOETIN ALFA [Suspect]
     Active Substance: DARBEPOETIN ALFA
     Dosage: 240 MUG, QD
     Route: 058
     Dates: start: 20171121, end: 20171121
  6. GLAKAY [Concomitant]
     Active Substance: MENATETRENONE
     Indication: MYELODYSPLASTIC SYNDROME
     Dosage: 45 MG
     Route: 048
     Dates: start: 20171226

REACTIONS (1)
  - Type 2 diabetes mellitus [Recovering/Resolving]

NARRATIVE: CASE EVENT DATE: 20180213
